FAERS Safety Report 10523842 (Version 6)
Quarter: 2015Q2

REPORT INFORMATION
  Report Type: Spontaneous
  Country: US (occurrence: US)
  Receive Date: 20141017
  Receipt Date: 20150626
  Transmission Date: 20150821
  Serious: Yes (Death, Life-Threatening, Hospitalization, Other)
  Sender: FDA-Public Use
  Company Number: US-UCBSA-2014004328

PATIENT
  Age: 57 Year
  Sex: Male
  Weight: 100 kg

DRUGS (4)
  1. VIMPAT [Suspect]
     Active Substance: LACOSAMIDE
     Dosage: 200 MG, 2X/DAY (BID) (ONE TABLET IN THE MORNING, ONE TABLET AT NIGHT)
     Dates: start: 20140725, end: 20150329
  2. VIMPAT [Suspect]
     Active Substance: LACOSAMIDE
     Indication: SEIZURE
     Dosage: 150 MG, 2X/DAY (BID)
     Route: 048
     Dates: start: 20140530, end: 201406
  3. PLAVIX [Concomitant]
     Active Substance: CLOPIDOGREL BISULFATE
     Indication: COAGULOPATHY
     Dosage: UNK
     Route: 048
     Dates: start: 2010
  4. KEPPRA [Suspect]
     Active Substance: LEVETIRACETAM
     Indication: SEIZURE
     Dosage: 750 MG, 2X/DAY (BID)
     Route: 048
     Dates: start: 20140725, end: 20150329

REACTIONS (3)
  - Seizure [Recovered/Resolved]
  - Unresponsive to stimuli [Recovered/Resolved]
  - Cerebrovascular accident [Fatal]

NARRATIVE: CASE EVENT DATE: 20140608
